FAERS Safety Report 20619093 (Version 1)
Quarter: 2022Q1

REPORT INFORMATION
  Report Type: Other
  Country: CA (occurrence: CA)
  Receive Date: 20220322
  Receipt Date: 20220322
  Transmission Date: 20220423
  Serious: Yes (Other)
  Sender: FDA-Public Use
  Company Number: CA-CELLTRION INC.-2022CA003153

PATIENT

DRUGS (3)
  1. RITUXIMAB [Suspect]
     Active Substance: RITUXIMAB
     Indication: Rheumatoid arthritis
     Dosage: 1000 MILLIGRAM
     Route: 042
  2. HYDROXYCHLOROQUINE SULFATE [Concomitant]
     Active Substance: HYDROXYCHLOROQUINE SULFATE
  3. PREDNISONE [Concomitant]
     Active Substance: PREDNISONE

REACTIONS (14)
  - Chest discomfort [Unknown]
  - Chest pain [Unknown]
  - Lip swelling [Unknown]
  - Pharyngeal mass [Unknown]
  - Poor venous access [Unknown]
  - Swelling of eyelid [Unknown]
  - Vein collapse [Unknown]
  - Anaphylactic reaction [Unknown]
  - Nausea [Unknown]
  - Pruritus [Unknown]
  - Swelling face [Unknown]
  - Vomiting [Unknown]
  - Off label use [Unknown]
  - Intentional product use issue [Unknown]
